FAERS Safety Report 10015069 (Version 2)
Quarter: 2014Q1

REPORT INFORMATION
  Report Type: Report from Study
  Country: US (occurrence: US)
  Receive Date: 20140317
  Receipt Date: 20140317
  Transmission Date: 20141002
  Serious: Yes (Hospitalization, Disabling)
  Sender: FDA-Public Use
  Company Number: US-SA-200416486US

PATIENT
  Age: 47 Year
  Sex: Female

DRUGS (18)
  1. DOCETAXEL [Suspect]
     Indication: BREAST CANCER
     Route: 042
     Dates: start: 20031017, end: 20031217
  2. TRASTUZUMAB [Suspect]
     Indication: BREAST CANCER
     Route: 042
     Dates: start: 20040402, end: 20040806
  3. TRASTUZUMAB [Suspect]
     Indication: BREAST CANCER
     Route: 042
     Dates: start: 20031016, end: 20031016
  4. TRASTUZUMAB [Suspect]
     Indication: BREAST CANCER
     Route: 042
  5. DOXORUBICIN [Suspect]
     Indication: BREAST CANCER
     Route: 042
     Dates: start: 20030717, end: 20030925
  6. CYCLOPHOSPHAMIDE [Suspect]
     Indication: BREAST CANCER
     Route: 042
     Dates: start: 20030717, end: 20030925
  7. REMERON [Concomitant]
     Indication: INSOMNIA
     Route: 048
     Dates: start: 20040309
  8. ALBUTEROL [Concomitant]
     Indication: ASTHMA
     Dosage: DOSE AS USED: PUFF
     Route: 055
     Dates: start: 20040603
  9. TAMOXIFEN [Concomitant]
     Indication: BREAST CANCER
     Route: 048
     Dates: start: 20040309
  10. ATIVAN [Concomitant]
     Indication: ANXIETY
     Route: 048
     Dates: start: 20030719
  11. ZOFRAN [Concomitant]
     Indication: NAUSEA
     Route: 048
     Dates: start: 20030711
  12. LEXAPRO [Concomitant]
     Indication: DEPRESSION
     Route: 048
     Dates: start: 20040419
  13. ATROVENT [Concomitant]
     Indication: ASTHMA
     Dosage: DOSE AS USED: PUFF
     Route: 048
     Dates: start: 20040513
  14. OXYCODONE [Concomitant]
     Indication: PAIN
     Route: 048
     Dates: start: 20040513
  15. MAXZIDE [Concomitant]
     Indication: HYPERTENSION
     Dosage: DOSE AS USED: 75/50 MG
     Route: 048
     Dates: start: 20040618
  16. METHADONE [Concomitant]
     Indication: PAIN
     Route: 048
     Dates: start: 20040628
  17. MULTIVITAMINS [Concomitant]
     Dosage: DOSE AS USED: 1 TAB
     Route: 048
     Dates: start: 20040805
  18. XANAX [Concomitant]
     Indication: ANXIETY
     Route: 048
     Dates: start: 20040805

REACTIONS (5)
  - Arthritis [Recovered/Resolved with Sequelae]
  - Pain in extremity [Recovered/Resolved]
  - Local swelling [Recovered/Resolved]
  - Pain [Recovered/Resolved]
  - Oropharyngeal pain [Recovered/Resolved]
